FAERS Safety Report 8055816-X (Version None)
Quarter: 2011Q4

REPORT INFORMATION
  Report Type: 
  Country: None (occurrence: None)
  Receive Date: 20111219
  Receipt Date: 20110419
  Transmission Date: 20120403
  Serious: Yes (Other)
  Sender: FDA-Public Use
  Company Number: ENTC2011-0143

PATIENT
  Sex: Male

DRUGS (4)
  1. STALEVO 100 [Suspect]
     Dosage: 300 MG, 3 IN 1 D
  2. LIPITOR [Concomitant]
  3. LISINOPRIL [Concomitant]
  4. MIRAPEX [Concomitant]

REACTIONS (2)
  - MALIGNANT MELANOMA [None]
  - SKIN CANCER [None]
